FAERS Safety Report 8801656 (Version 1)
Quarter: 2012Q4

REPORT INFORMATION
  Report Type: 
  Country: FR (occurrence: FR)
  Receive Date: 20120921
  Receipt Date: 20120921
  Transmission Date: 20130627
  Serious: Yes (Other)
  Sender: FDA-Public Use
  Company Number: FR-ROCHE-1122141

PATIENT
  Age: 62 Year
  Sex: Male

DRUGS (1)
  1. APRANAX [Suspect]
     Indication: BACK PAIN
     Route: 048
     Dates: start: 20120217, end: 20120217

REACTIONS (6)
  - Dermatitis bullous [Recovered/Resolved]
  - Paraesthesia [Recovered/Resolved]
  - Inflammation [Recovered/Resolved]
  - C-reactive protein increased [Recovered/Resolved]
  - Erythema [Recovered/Resolved]
  - Aphthous stomatitis [Recovered/Resolved]
